FAERS Safety Report 18566414 (Version 1)
Quarter: 2020Q4

REPORT INFORMATION
  Report Type: Spontaneous
  Country: DK (occurrence: DK)
  Receive Date: 20201201
  Receipt Date: 20201201
  Transmission Date: 20210114
  Serious: Yes (Other)
  Sender: FDA-Public Use
  Company Number: NVSC2020DK312665

PATIENT
  Age: 29 Year
  Sex: Female

DRUGS (4)
  1. AZATIOPRIN MYLAN [Suspect]
     Active Substance: AZATHIOPRINE
     Indication: INFLAMMATORY BOWEL DISEASE
     Dosage: 50 MG, QD
     Route: 048
     Dates: start: 20170905
  2. ALLOPURINOL. [Suspect]
     Active Substance: ALLOPURINOL
     Indication: INFLAMMATORY BOWEL DISEASE
     Dosage: 100 MG, QD
     Route: 048
     Dates: start: 20180514
  3. COLGATE DURAPHAT [Concomitant]
     Active Substance: SODIUM FLUORIDE
     Indication: DENTAL CARIES
     Dosage: 3 DF, Q, (STRENGTH: 5 MG/G)
     Route: 004
     Dates: start: 20190425
  4. MESALAZINE [Concomitant]
     Active Substance: MESALAMINE
     Indication: INFLAMMATORY BOWEL DISEASE
     Dosage: 2400 MG, QD
     Route: 048
     Dates: start: 20170102

REACTIONS (2)
  - Maternal exposure during pregnancy [Unknown]
  - Abortion missed [Not Recovered/Not Resolved]

NARRATIVE: CASE EVENT DATE: 20200831
